FAERS Safety Report 5063703-4 (Version None)
Quarter: 2006Q3

REPORT INFORMATION
  Report Type: 
  Country: None (occurrence: None)
  Receive Date: 20060724
  Receipt Date: 20060630
  Transmission Date: 20061208
  Serious: Yes (Hospitalization, Disabling)
  Sender: FDA-Public Use
  Company Number: 2006RR-02907

PATIENT
  Age: 75 Year
  Sex: Male

DRUGS (2)
  1. DILTIAZEM [Suspect]
     Indication: HYPERTENSION
     Dosage: 240 MG, QD, ORAL
     Route: 048
     Dates: start: 19940101
  2. SIMVASTATIN [Suspect]
     Indication: HYPERCHOLESTEROLAEMIA
     Dosage: SEE IMAGE, ORAL
     Route: 048
     Dates: start: 19990501

REACTIONS (5)
  - DRUG INTERACTION [None]
  - HAEMODIALYSIS [None]
  - RENAL FAILURE [None]
  - RHABDOMYOLYSIS [None]
  - TENDERNESS [None]
